FAERS Safety Report 7287693-9 (Version None)
Quarter: 2011Q1

REPORT INFORMATION
  Report Type: 
  Country: None (occurrence: None)
  Receive Date: 20110211
  Receipt Date: 20110207
  Transmission Date: 20110831
  Serious: Yes (Other)
  Sender: FDA-Public Use
  Company Number: US-AMGEN-USASP2011003822

PATIENT
  Age: 55 Year
  Sex: Female
  Weight: 53.968 kg

DRUGS (5)
  1. CALCIUM [Concomitant]
  2. PROLIA [Suspect]
     Indication: OSTEOPOROSIS POSTMENOPAUSAL
     Dosage: 60 MG, Q6MO
     Route: 058
     Dates: start: 20101228
  3. ADDERALL 10 [Concomitant]
  4. LUNESTA [Concomitant]
  5. VITAMIN A [Concomitant]

REACTIONS (4)
  - PAIN IN JAW [None]
  - INFLUENZA LIKE ILLNESS [None]
  - RASH [None]
  - BACK PAIN [None]
